FAERS Safety Report 4747838-9 (Version None)
Quarter: 2005Q3

REPORT INFORMATION
  Report Type: 
  Country: None (occurrence: None)
  Receive Date: 20050816
  Receipt Date: 20050805
  Transmission Date: 20060218
  Serious: Yes (Death, Hospitalization)
  Sender: FDA-Public Use
  Company Number: 200511329BWH

PATIENT
  Age: 81 Year
  Sex: Female
  Weight: 54.4316 kg

DRUGS (14)
  1. CIPRO [Suspect]
     Indication: URINARY TRACT INFECTION
     Dosage: ORAL
     Route: 048
     Dates: start: 20050420, end: 20050422
  2. CIPRO IV [Suspect]
     Indication: URINARY TRACT INFECTION
     Dosage: INTRAVENOUS
     Route: 042
     Dates: start: 20050422, end: 20050424
  3. AMARYL [Suspect]
     Indication: DIABETES MELLITUS NON-INSULIN-DEPENDENT
     Dosage: 1 MG, OM, ORAL  A FEW YEARS
     Route: 048
  4. FUROSEMIDE [Concomitant]
  5. DIGITEK [Concomitant]
  6. PREDNISONE TAB [Concomitant]
  7. PRILOSEC [Concomitant]
  8. FLOVENT [Concomitant]
  9. MORPHINE SULFATE [Concomitant]
  10. MICRO-K [Concomitant]
  11. CARAFATE [Concomitant]
  12. TRAVATAN [Concomitant]
  13. ZYPREXA [Concomitant]
  14. ZOLOFT [Concomitant]

REACTIONS (6)
  - BLOOD ALKALINE PHOSPHATASE INCREASED [None]
  - DEPRESSED LEVEL OF CONSCIOUSNESS [None]
  - HYPOGLYCAEMIA [None]
  - PYREXIA [None]
  - RENAL FAILURE [None]
  - WHITE BLOOD CELL COUNT INCREASED [None]
